FAERS Safety Report 14116717 (Version 1)
Quarter: 2017Q4

REPORT INFORMATION
  Report Type: Spontaneous
  Country: DK (occurrence: DK)
  Receive Date: 20171023
  Receipt Date: 20171023
  Transmission Date: 20180321
  Serious: Yes (Death, Other)
  Sender: FDA-Public Use
  Company Number: DK-TAKEDA-THQ2008A00578

PATIENT
  Age: 57 Year
  Sex: Male

DRUGS (1)
  1. LANSOPRAZOLE. [Suspect]
     Active Substance: LANSOPRAZOLE
     Indication: DUODENAL ULCER
     Dosage: 30 MG, QD
     Route: 048
     Dates: start: 1997

REACTIONS (2)
  - Rash papulosquamous [Unknown]
  - Subacute cutaneous lupus erythematosus [Fatal]

NARRATIVE: CASE EVENT DATE: 1997
